FAERS Safety Report 18910394 (Version 1)
Quarter: 2021Q1

REPORT INFORMATION
  Report Type: Spontaneous
  Country: US (occurrence: US)
  Receive Date: 20210218
  Receipt Date: 20210218
  Transmission Date: 20210420
  Serious: No
  Sender: FDA-Public Use
  Company Number: US-DRREDDYS-USA/USA/21/0131773

PATIENT
  Age: 23 Year
  Sex: Female

DRUGS (2)
  1. ZENATANE [Suspect]
     Active Substance: ISOTRETINOIN
     Indication: PRODUCT USED FOR UNKNOWN INDICATION
     Dosage: RMA ISSUE DATE: 11/16/2020 12:29:25 PM,
     Route: 048
     Dates: end: 20201221
  2. ZENATANE [Suspect]
     Active Substance: ISOTRETINOIN
     Dosage: RMA ISSUE DATE: 10/8/2020 11:01:39 AM, 9/7/2020 11:32:34 AM, 8/4/2020 8:30:33 AM, 8/6/2016 11:09:30
     Route: 048

REACTIONS (1)
  - Adverse drug reaction [Unknown]
